FAERS Safety Report 10052747 (Version 1)
Quarter: 2014Q2

REPORT INFORMATION
  Report Type: Report from Study
  Country: CA (occurrence: CA)
  Receive Date: 20140402
  Receipt Date: 20140402
  Transmission Date: 20141212
  Serious: Yes (Other)
  Sender: FDA-Public Use
  Company Number: CA-JNJFOC-20140316696

PATIENT
  Age: 28 Year
  Sex: Female
  Weight: 70 kg

DRUGS (2)
  1. INFLIXIMAB [Suspect]
     Indication: CROHN^S DISEASE
     Route: 042
     Dates: start: 20130131
  2. ATIVAN [Concomitant]
     Route: 065

REACTIONS (2)
  - Tympanic membrane perforation [Not Recovered/Not Resolved]
  - Labyrinthitis [Not Recovered/Not Resolved]
